FAERS Safety Report 4626110-1 (Version None)
Quarter: 2005Q2

REPORT INFORMATION
  Report Type: 
  Country: None (occurrence: None)
  Receive Date: 20050404
  Receipt Date: 20050322
  Transmission Date: 20051028
  Serious: Yes (Other)
  Sender: FDA-Public Use
  Company Number: DE-BRISTOL-MYERS SQUIBB COMPANY-12907309

PATIENT
  Age: 21 Year
  Sex: Male

DRUGS (4)
  1. CISPLATIN [Suspect]
     Indication: MEDIASTINAL MASS
  2. ETOPOSIDE [Suspect]
     Indication: MEDIASTINAL MASS
  3. IFOSFAMIDE [Suspect]
     Indication: MEDIASTINAL MASS
  4. PACLITAXEL [Suspect]
     Indication: MEDIASTINAL MASS

REACTIONS (2)
  - MYELODYSPLASTIC SYNDROME [None]
  - REFRACTORY ANAEMIA WITH RINGED SIDEROBLASTS [None]
